FAERS Safety Report 10152854 (Version 1)
Quarter: 2014Q2

REPORT INFORMATION
  Report Type: Spontaneous
  Country: US (occurrence: None)
  Receive Date: 20140502
  Receipt Date: 20140502
  Transmission Date: 20141212
  Serious: Yes (Hospitalization)
  Sender: FDA-Public Use
  Company Number: None

PATIENT
  Age: 67 Year
  Sex: Female
  Weight: 68.8 kg

DRUGS (8)
  1. EXPAREL [Suspect]
     Indication: ANALGESIC THERAPY
     Dosage: INFLITRATE INTO WOUND
     Dates: start: 20140415, end: 20140415
  2. BUPIVACAINE [Concomitant]
  3. CLONIDINE [Concomitant]
  4. EPINEPHRINE [Concomitant]
  5. CALCIUM CHLORIDE [Concomitant]
  6. KETOROLAC [Concomitant]
  7. THROMBIN [Concomitant]
  8. VANCOMYCIN [Concomitant]

REACTIONS (1)
  - Extrasystoles [None]
